FAERS Safety Report 24747111 (Version 1)
Quarter: 2024Q4

REPORT INFORMATION
  Report Type: Spontaneous
  Country: US (occurrence: US)
  Receive Date: 20241218
  Receipt Date: 20241218
  Transmission Date: 20250114
  Serious: Yes (Hospitalization)
  Sender: AUROBINDO
  Company Number: US-AUROBINDO-AUR-APL-2024-061386

PATIENT

DRUGS (13)
  1. LACOSAMIDE [Suspect]
     Active Substance: LACOSAMIDE
     Indication: Product used for unknown indication
     Dosage: 9 MILLIGRAM/KILOGRAM
     Route: 065
  2. NITRIC OXIDE [Concomitant]
     Active Substance: NITRIC OXIDE
     Indication: Product used for unknown indication
     Dosage: UNK
     Route: 065
  3. INO 1001 [Concomitant]
     Indication: Product used for unknown indication
     Dosage: UNK (20 PPM) (DAY 1 AND 2)
     Route: 065
  4. EPINEPHRINE [Concomitant]
     Active Substance: EPINEPHRINE
     Indication: Product used for unknown indication
     Dosage: UNK [0.05 ?G/KG/MIN]
     Route: 065
  5. EPINEPHRINE [Concomitant]
     Active Substance: EPINEPHRINE
     Dosage: EPINEPHRINE WEANED OFF ON DAY 2
     Route: 065
  6. VASOPRESSIN [Concomitant]
     Active Substance: VASOPRESSIN
     Indication: Product used for unknown indication
     Dosage: UNK [ 1.6 MILLIUNITS/KG/MIN]
     Route: 065
  7. MILRINONE [Concomitant]
     Active Substance: MILRINONE
     Indication: Product used for unknown indication
     Dosage: UNK [0.66 ?G/KG/MIN] (DAY 9, 12, 16)
     Route: 065
  8. PHENOBARBITAL [Concomitant]
     Active Substance: PHENOBARBITAL
     Indication: Product used for unknown indication
     Dosage: 20 MILLIGRAM/KILOGRAM
     Route: 042
  9. PHENOBARBITAL [Concomitant]
     Active Substance: PHENOBARBITAL
     Dosage: 5 MILLIGRAM/KILOGRAM, ONCE A DAY
     Route: 065
  10. FOSPHENYTOIN [Concomitant]
     Active Substance: FOSPHENYTOIN
     Indication: Product used for unknown indication
     Dosage: 20 MILLIGRAM/KILOGRAM [2 DOSES ON DOL 1 A]
     Route: 065
  11. MIDAZOLAM [Concomitant]
     Active Substance: MIDAZOLAM
     Indication: Product used for unknown indication
     Dosage: 90 MICROGRAM/KILOGRAM
     Route: 065
  12. MIDAZOLAM [Concomitant]
     Active Substance: MIDAZOLAM
     Dosage: MIDAZOLAM INFUSION WEANING ON DAY 7
     Route: 065
  13. LEVETIRACETAM [Concomitant]
     Active Substance: LEVETIRACETAM
     Indication: Product used for unknown indication
     Dosage: UNK
     Route: 065

REACTIONS (1)
  - Left ventricular dysfunction [Unknown]
